FAERS Safety Report 6803271-7 (Version None)
Quarter: 2010Q2

REPORT INFORMATION
  Report Type: 
  Country: None (occurrence: None)
  Receive Date: 20100628
  Receipt Date: 20090819
  Transmission Date: 20101027
  Serious: No
  Sender: FDA-Public Use
  Company Number: US-ASTRAZENECA-2008UW26742

PATIENT
  Age: 45 Year
  Sex: Male

DRUGS (1)
  1. ZOLADEX [Suspect]
     Indication: PROSTATE CANCER
     Route: 058
     Dates: start: 20080701, end: 20090121

REACTIONS (3)
  - DRUG INTOLERANCE [None]
  - HOT FLUSH [None]
  - NIGHT SWEATS [None]
